FAERS Safety Report 7363713-8 (Version None)
Quarter: 2011Q1

REPORT INFORMATION
  Report Type: 
  Country: None (occurrence: None)
  Receive Date: 20110321
  Receipt Date: 20110316
  Transmission Date: 20110831
  Serious: Yes (Death)
  Sender: FDA-Public Use
  Company Number: US-ASTRAZENECA-2011SE04595

PATIENT
  Age: 57 Year
  Sex: Male

DRUGS (2)
  1. METFORMIN HCL [Concomitant]
  2. SYMBICORT [Suspect]
     Indication: CHRONIC OBSTRUCTIVE PULMONARY DISEASE
     Dosage: 160/4.5 MCG 1 PUFF BID
     Route: 055
     Dates: start: 20101021

REACTIONS (1)
  - MYOCARDIAL INFARCTION [None]
